FAERS Safety Report 21601835 (Version 2)
Quarter: 2022Q4

REPORT INFORMATION
  Report Type: Other
  Country: IT (occurrence: IT)
  Receive Date: 20221116
  Receipt Date: 20221118
  Transmission Date: 20230112
  Serious: Yes (Hospitalization, Other)
  Sender: FDA-Public Use
  Company Number: None

PATIENT
  Age: 33 Year
  Sex: Female

DRUGS (3)
  1. GILTERITINIB [Suspect]
     Active Substance: GILTERITINIB
     Indication: Acute myeloid leukaemia
     Dosage: 120 MG, ONCE DAILY (3 TABS OF 40 MG)
     Route: 048
     Dates: start: 20220721
  2. GILTERITINIB [Suspect]
     Active Substance: GILTERITINIB
     Route: 065
     Dates: start: 20220817
  3. POSACONAZOLE [Concomitant]
     Active Substance: POSACONAZOLE
     Indication: Antifungal prophylaxis
     Dosage: 300 MG, DAILY (3 TABS OF 100 MG/DAY)
     Route: 048

REACTIONS (1)
  - Gas gangrene [Recovered/Resolved]

NARRATIVE: CASE EVENT DATE: 20220729
